FAERS Safety Report 18144766 (Version 3)
Quarter: 2021Q3

REPORT INFORMATION
  Report Type: Spontaneous
  Country: JP (occurrence: JP)
  Receive Date: 20200813
  Receipt Date: 20210920
  Transmission Date: 20211014
  Serious: Yes (Other)
  Sender: FDA-Public Use
  Company Number: JP-AMGEN-JPNNI2020130118

PATIENT

DRUGS (5)
  1. PANITUMUMAB [Suspect]
     Active Substance: PANITUMUMAB
     Indication: RECTAL ADENOCARCINOMA
     Dosage: 6 MILLIGRAM/KILOGRAM
     Route: 050
  2. LEUCOVORINE [Suspect]
     Active Substance: LEUCOVORIN
     Indication: RECTAL ADENOCARCINOMA
     Dosage: 200 MILLIGRAM/SQ. METER
     Route: 065
  3. OXALIPLATIN. [Suspect]
     Active Substance: OXALIPLATIN
     Indication: RECTAL ADENOCARCINOMA
     Dosage: 85 MILLIGRAM/SQ. METER
     Route: 065
  4. FLUOROURACIL. [Suspect]
     Active Substance: FLUOROURACIL
     Indication: RECTAL ADENOCARCINOMA
     Dosage: 400 MILLIGRAM/SQ. METER
     Route: 040
  5. FLUOROURACIL. [Suspect]
     Active Substance: FLUOROURACIL
     Dosage: 2400 MILLIGRAM/SQ. METER
     Route: 041

REACTIONS (13)
  - Neutropenia [Unknown]
  - Hepatic function abnormal [Unknown]
  - Rash [Unknown]
  - Stomatitis [Unknown]
  - Dehydration [Unknown]
  - Decreased appetite [Unknown]
  - Hyponatraemia [Unknown]
  - Pulmonary embolism [Unknown]
  - Skin toxicity [Unknown]
  - Vomiting [Unknown]
  - Palmar-plantar erythrodysaesthesia syndrome [Unknown]
  - Hypomagnesaemia [Unknown]
  - Diarrhoea [Unknown]
